FAERS Safety Report 26123041 (Version 1)
Quarter: 2025Q4

REPORT INFORMATION
  Report Type: Spontaneous
  Country: CH (occurrence: CH)
  Receive Date: 20251204
  Receipt Date: 20251204
  Transmission Date: 20260118
  Serious: Yes (Life-Threatening, Hospitalization, Other)
  Sender: PFIZER
  Company Number: None

PATIENT
  Age: 73 Year
  Sex: Male
  Weight: 75.8 kg

DRUGS (10)
  1. LORAZEPAM [Suspect]
     Active Substance: LORAZEPAM
     Dosage: UNK
     Route: 048
  2. QUETIAPINE FUMARATE [Suspect]
     Active Substance: QUETIAPINE FUMARATE
     Dosage: 25 MG, 4X/DAY (EVERY 6H)
     Route: 048
     Dates: end: 20250527
  3. ABILIFY [Suspect]
     Active Substance: ARIPIPRAZOLE
     Dosage: 15 MG, 1X/DAY
     Route: 048
     Dates: end: 20250527
  4. RISPERDAL [Suspect]
     Active Substance: RISPERIDONE
     Dosage: 0.5 MG, 2X/DAY (EVERY 12H)
     Route: 048
     Dates: end: 20250527
  5. CANDESARTAN CILEXETIL [Concomitant]
     Active Substance: CANDESARTAN CILEXETIL
     Dosage: 8 MG, 1X/DAY
     Route: 048
  6. NORVASC [Concomitant]
     Active Substance: AMLODIPINE BESYLATE
     Route: 048
  7. BISOPROLOL FUMARATE [Concomitant]
     Active Substance: BISOPROLOL FUMARATE
     Dosage: 2.5 MG, 1X/DAY
     Route: 048
  8. CLOTRIMAZOLE [Concomitant]
     Active Substance: CLOTRIMAZOLE
     Dosage: 1 DF, 2X/DAY (EVERY 12H)
     Route: 061
  9. CARBOMER [Concomitant]
     Active Substance: CARBOMER
     Dosage: 1 DROP, 4X/DAY (EVERY 6H)
     Route: 047
  10. METFORMIN [Concomitant]
     Active Substance: METFORMIN HYDROCHLORIDE
     Dosage: 500 MG, 2X/DAY (EVERY 12H)
     Route: 048

REACTIONS (5)
  - Malignant catatonia [Recovering/Resolving]
  - Disturbance in attention [Recovering/Resolving]
  - Muscle rigidity [Recovering/Resolving]
  - Hyperthermia [Recovering/Resolving]
  - Mutism [Recovering/Resolving]

NARRATIVE: CASE EVENT DATE: 20250526
